FAERS Safety Report 5188370-0 (Version None)
Quarter: 2006Q4

REPORT INFORMATION
  Report Type: 
  Country: None (occurrence: None)
  Receive Date: 20061214
  Receipt Date: 20061205
  Transmission Date: 20070319
  Serious: Yes (Other)
  Sender: FDA-Public Use
  Company Number: 2006129685

PATIENT
  Age: 35 Year
  Sex: Female
  Weight: 63.5036 kg

DRUGS (1)
  1. ZOLOFT [Suspect]
     Indication: OBSESSIVE-COMPULSIVE DISORDER
     Dosage: 200 MG (100 MG, 2 IN 1 D)

REACTIONS (4)
  - DISORIENTATION [None]
  - DISTURBANCE IN ATTENTION [None]
  - OBSESSIVE-COMPULSIVE DISORDER [None]
  - PHARMACEUTICAL PRODUCT COMPLAINT [None]
